FAERS Safety Report 6899946-4 (Version None)
Quarter: 2010Q3

REPORT INFORMATION
  Report Type: 
  Country: None (occurrence: None)
  Receive Date: 20100803
  Receipt Date: 20100719
  Transmission Date: 20110219
  Serious: Yes (Hospitalization)
  Sender: FDA-Public Use
  Company Number: FR-JNJFOC-20100800041

PATIENT
  Sex: Male

DRUGS (5)
  1. TRAMADOL HYDROCHLORIDE AND ACETAMINOPHEN [Suspect]
     Indication: URETHRITIS
     Route: 048
  2. PROZAC [Suspect]
     Indication: PRODUCT USED FOR UNKNOWN INDICATION
     Route: 048
  3. CLONAZEPAM [Suspect]
     Indication: PRODUCT USED FOR UNKNOWN INDICATION
     Route: 048
  4. KETUM [Suspect]
     Indication: ARTHRALGIA
     Route: 003
  5. IBUPROFEN [Suspect]
     Indication: URETHRITIS
     Route: 048

REACTIONS (3)
  - CYTOLYTIC HEPATITIS [None]
  - DERMATITIS CONTACT [None]
  - PHOTOSENSITIVITY REACTION [None]
